FAERS Safety Report 4955769-4 (Version None)
Quarter: 2006Q1

REPORT INFORMATION
  Report Type: 
  Country: None (occurrence: None)
  Receive Date: 20060328
  Receipt Date: 20060308
  Transmission Date: 20060701
  Serious: Yes (Hospitalization)
  Sender: FDA-Public Use
  Company Number: PHBS2006JP03774

PATIENT
  Age: 36 Year
  Sex: Female

DRUGS (2)
  1. DICLOFENAC SODIUM [Suspect]
     Indication: ERYTHEMA NODOSUM
     Dosage: 70 MG/DAY
     Route: 048
  2. PREDNISOLONE [Suspect]
     Indication: ERYTHEMA NODOSUM
     Dosage: 20 MG/DAY
     Route: 048

REACTIONS (11)
  - ABDOMINAL DISTENSION [None]
  - ASCITES [None]
  - ERYTHEMA NODOSUM [None]
  - LARGE INTESTINE PERFORATION [None]
  - PERITONITIS [None]
  - SARCOIDOSIS [None]
  - SJOGREN'S SYNDROME [None]
  - SURGERY [None]
  - UVEITIS [None]
  - VASCULITIS [None]
  - VASCULITIS GASTROINTESTINAL [None]
